FAERS Safety Report 18906210 (Version 2)
Quarter: 2021Q3

REPORT INFORMATION
  Report Type: Spontaneous
  Country: US (occurrence: US)
  Receive Date: 20210217
  Receipt Date: 20210922
  Transmission Date: 20211014
  Serious: Yes (Other)
  Sender: FDA-Public Use
  Company Number: US-MYLANLABS-2021M1009269

PATIENT
  Age: 49 Year
  Sex: Female

DRUGS (1)
  1. VALSARTAN AND HYDROCHLOROTHIAZIDE TABLETS, USP [Suspect]
     Active Substance: HYDROCHLOROTHIAZIDE\VALSARTAN
     Indication: HYPERTENSION
     Dosage: 320?25MG
     Dates: start: 201301, end: 201412

REACTIONS (1)
  - Colorectal cancer stage III [Recovered/Resolved]

NARRATIVE: CASE EVENT DATE: 20190210
